FAERS Safety Report 11227179 (Version 1)
Quarter: 2015Q2

REPORT INFORMATION
  Report Type: Spontaneous
  Country: BR (occurrence: BR)
  Receive Date: 20150630
  Receipt Date: 20150630
  Transmission Date: 20150821
  Serious: Yes (Hospitalization, Other)
  Sender: FDA-Public Use
  Company Number: BR-ASTRAZENECA-2015SE62395

PATIENT
  Age: 55 Year
  Sex: Male
  Weight: 78 kg

DRUGS (13)
  1. ATACAND HCT [Suspect]
     Active Substance: CANDESARTAN CILEXETIL\HYDROCHLOROTHIAZIDE
     Indication: HYPERTENSION
     Dosage: 16/12.5 MG, 1/2 TABLET/AT NIGHT
     Route: 048
     Dates: start: 2010
  2. METFORMIN [Suspect]
     Active Substance: METFORMIN HYDROCHLORIDE
     Indication: TYPE 2 DIABETES MELLITUS
     Dosage: NON-AZ PRODUCT, 850 MG, UNKNOWN, TWO TIMES A DAY
     Route: 048
     Dates: start: 2011
  3. AMIODARONE [Suspect]
     Active Substance: AMIODARONE
     Indication: ARRHYTHMIA
     Route: 048
  4. RIVOTRIL [Concomitant]
     Active Substance: CLONAZEPAM
     Indication: SLEEP DISORDER
     Dosage: 5 DROPS/AT NIGHT
     Route: 048
  5. BRILINTA [Suspect]
     Active Substance: TICAGRELOR
     Indication: ANTIPLATELET THERAPY
     Route: 048
     Dates: start: 2012
  6. ASA INFANTIL [Concomitant]
     Active Substance: ASPIRIN
     Route: 048
     Dates: start: 2012
  7. SINERGEN [Concomitant]
     Indication: HYPERTENSION
     Dosage: 5/20 MG , DAILY, BY MORNING
     Route: 048
  8. ISOSORBIDE [Concomitant]
     Active Substance: ISOSORBIDE
     Indication: HYPERTENSION
     Route: 048
     Dates: start: 2012
  9. ISOSORBIDE [Concomitant]
     Active Substance: ISOSORBIDE
     Indication: VASODILATATION
     Route: 048
     Dates: start: 2012
  10. ATACAND HCT [Suspect]
     Active Substance: CANDESARTAN CILEXETIL\HYDROCHLOROTHIAZIDE
     Indication: HYPERTENSION
     Dosage: 16/12.5 MG, DAILY
     Route: 048
     Dates: start: 2009, end: 2010
  11. BRILINTA [Suspect]
     Active Substance: TICAGRELOR
     Indication: ANGIOPLASTY
     Route: 048
     Dates: start: 2012
  12. ROSUVASTATIN [Suspect]
     Active Substance: ROSUVASTATIN
     Indication: BLOOD CHOLESTEROL ABNORMAL
     Route: 048
     Dates: start: 2012
  13. SINERGEN [Concomitant]
     Indication: HYPERTENSION
     Dosage: AT NIGHT
     Route: 048
     Dates: start: 2010

REACTIONS (5)
  - Off label use [Not Recovered/Not Resolved]
  - Arterial occlusive disease [Recovered/Resolved]
  - Hyperthyroidism [Not Recovered/Not Resolved]
  - Weight decreased [Unknown]
  - Type 2 diabetes mellitus [Recovered/Resolved]

NARRATIVE: CASE EVENT DATE: 2010
